FAERS Safety Report 17235163 (Version 1)
Quarter: 2020Q1

REPORT INFORMATION
  Report Type: Spontaneous
  Country: DK (occurrence: DK)
  Receive Date: 20200106
  Receipt Date: 20200106
  Transmission Date: 20200409
  Serious: Yes (Other)
  Sender: FDA-Public Use
  Company Number: DK-TEVA-2019-DK-1162055

PATIENT
  Age: 67 Year
  Sex: Male

DRUGS (6)
  1. IMUREL [Suspect]
     Active Substance: AZATHIOPRINE SODIUM
     Indication: CHORIORETINITIS
     Dosage: DOSE: UNKNOWN. STRENGTH: UNKNOWN.
     Route: 048
  2. METHOTREXATE. [Suspect]
     Active Substance: METHOTREXATE
     Indication: CHORIORETINITIS
     Dosage: STRENGTH: 2.5 MG, DOSE: 17.5 MG PER WEEK
     Route: 048
     Dates: start: 20140429
  3. INFLECTRA [Suspect]
     Active Substance: INFLIXIMAB-DYYB
     Indication: RHEUMATOID ARTHRITIS
     Dosage: DOSE: UNKNOWN. STRENGTH: UNKNOWN.
     Route: 042
  4. SANDIMMUN NEORAL [Suspect]
     Active Substance: CYCLOSPORINE
     Indication: CHORIORETINITIS
     Dosage: DOSE: UNKNOWN. STRENGTH: UNKNOWN
     Route: 048
  5. REMICADE [Suspect]
     Active Substance: INFLIXIMAB
     Indication: RHEUMATOID ARTHRITIS
     Dosage: DOSE: UNKNOWN. STRENGTH: UNKNOWN.
     Route: 042
  6. REMSIMA [Suspect]
     Active Substance: INFLIXIMAB
     Indication: RHEUMATOID ARTHRITIS
     Dosage: DOSE: UNKNOWN. STRENGTH: UNKNOWN.
     Route: 042

REACTIONS (1)
  - Bladder cancer [Not Recovered/Not Resolved]

NARRATIVE: CASE EVENT DATE: 20160901
